FAERS Safety Report 4819616-3 (Version None)
Quarter: 2005Q3

REPORT INFORMATION
  Report Type: 
  Country: None (occurrence: None)
  Receive Date: 20050928
  Receipt Date: 20050928
  Transmission Date: 20060218
  Serious: Yes (Life-Threatening)
  Sender: FDA-Public Use
  Company Number: None

PATIENT
  Age: 58 Year
  Sex: Female
  Weight: 67.586 kg

DRUGS (7)
  1. PAMIDRONATE DISODIUM [Suspect]
     Indication: MULTIPLE MYELOMA
     Dosage: 90 MG IV IN 250 ML NS
     Route: 042
     Dates: start: 20040827, end: 20050617
  2. ARANESP [Concomitant]
  3. AMLODIPINE [Concomitant]
  4. CAC03 [Concomitant]
  5. ASPIRIN [Concomitant]
  6. CARVEDILOL [Concomitant]
  7. ONE-A-DAY MAX [Concomitant]

REACTIONS (2)
  - GLOMERULOSCLEROSIS [None]
  - RENAL IMPAIRMENT [None]
